FAERS Safety Report 4610063-6 (Version None)
Quarter: 2005Q1

REPORT INFORMATION
  Report Type: 
  Country: None (occurrence: None)
  Receive Date: 20050316
  Receipt Date: 20050311
  Transmission Date: 20050727
  Serious: Yes (Life-Threatening)
  Sender: FDA-Public Use
  Company Number: FR-GLAXOSMITHKLINE-B0374479A

PATIENT
  Age: 68 Year
  Sex: Female
  Weight: 50 kg

DRUGS (6)
  1. SERETIDE [Suspect]
     Dosage: 1PUFF TWICE PER DAY
     Route: 055
     Dates: start: 20030320
  2. SOLUPRED [Suspect]
     Dosage: 1UNIT AS REQUIRED
     Route: 048
     Dates: start: 20030320, end: 20040715
  3. ABUFENE [Concomitant]
     Route: 048
  4. RIVOTRIL [Concomitant]
     Route: 048
  5. ELISOR [Concomitant]
     Dosage: 1UNIT PER DAY
     Route: 048
  6. OMEPRAZOLE [Concomitant]
     Dosage: 20MG PER DAY
     Route: 048

REACTIONS (4)
  - ADRENAL CORTICAL INSUFFICIENCY [None]
  - ASTHENIA [None]
  - BLOOD CORTISOL DECREASED [None]
  - WEIGHT DECREASED [None]
